FAERS Safety Report 6216475-1 (Version None)
Quarter: 2009Q2

REPORT INFORMATION
  Report Type: 
  Country: None (occurrence: None)
  Receive Date: 20090603
  Receipt Date: 20090603
  Transmission Date: 20091009
  Serious: Yes (Disabling)
  Sender: FDA-Public Use
  Company Number: None

PATIENT
  Sex: Female
  Weight: 136.4 kg

DRUGS (1)
  1. LEVAQUIN [Suspect]
     Indication: BLOOD URINE PRESENT
     Dosage: 500MG 1 A DAY 14 DAYS
     Dates: start: 20060802, end: 20060816

REACTIONS (3)
  - ARTHRALGIA [None]
  - BACK PAIN [None]
  - DYSSTASIA [None]
